FAERS Safety Report 15558127 (Version 1)
Quarter: 2018Q4

REPORT INFORMATION
  Report Type: Report from Study
  Country: US (occurrence: US)
  Receive Date: 20181027
  Receipt Date: 20181027
  Transmission Date: 20190205
  Serious: Yes (Other)
  Sender: FDA-Public Use
  Company Number: US-JAZZ-2018-US-015691

PATIENT
  Age: 42 Year
  Sex: Female

DRUGS (2)
  1. XYREM [Suspect]
     Active Substance: SODIUM OXYBATE
     Indication: CATAPLEXY
  2. XYREM [Suspect]
     Active Substance: SODIUM OXYBATE
     Indication: NARCOLEPSY
     Dosage: 2.5 G, BID
     Route: 048
     Dates: start: 20181017, end: 20181017

REACTIONS (4)
  - Uterine disorder [Not Recovered/Not Resolved]
  - Hangover [Unknown]
  - Migraine [Unknown]
  - Dizziness [Unknown]

NARRATIVE: CASE EVENT DATE: 20181017
